FAERS Safety Report 21980083 (Version 2)
Quarter: 2023Q1

REPORT INFORMATION
  Report Type: Spontaneous
  Country: CN (occurrence: CN)
  Receive Date: 20230210
  Receipt Date: 20230214
  Transmission Date: 20230417
  Serious: Yes (Death, Life-Threatening, Other)
  Sender: FDA-Public Use
  Company Number: CN-009507513-2302CHN001677

PATIENT
  Sex: Male
  Weight: 40 kg

DRUGS (2)
  1. CILASTATIN SODIUM\IMIPENEM [Suspect]
     Active Substance: CILASTATIN SODIUM\IMIPENEM
     Indication: Pneumonia
     Dosage: 1 GRAM, Q8H (ALSO REPORTED AS TID)
     Route: 041
     Dates: start: 20230104, end: 20230107
  2. SODIUM CHLORIDE [Concomitant]
     Active Substance: SODIUM CHLORIDE
     Indication: Medication dilution
     Dosage: 0.9%, 100 MILLILITER, Q8H (ALSO REPORTED AS TID)
     Route: 041
     Dates: start: 20230104, end: 20230107

REACTIONS (13)
  - Death [Fatal]
  - Alanine aminotransferase increased [Not Recovered/Not Resolved]
  - Aspartate aminotransferase increased [Not Recovered/Not Resolved]
  - Liver injury [Unknown]
  - Acute hepatic failure [Unknown]
  - Respiratory failure [Unknown]
  - Atrial fibrillation [Unknown]
  - Renal failure [Unknown]
  - Pneumonia [Unknown]
  - Bronchitis chronic [Unknown]
  - Asthenia [Unknown]
  - Chronic obstructive pulmonary disease [Unknown]
  - Protein deficiency [Unknown]

NARRATIVE: CASE EVENT DATE: 20230101
